FAERS Safety Report 7224113-4 (Version None)
Quarter: 2011Q1

REPORT INFORMATION
  Report Type: 
  Country: None (occurrence: None)
  Receive Date: 20110106
  Receipt Date: 20110106
  Transmission Date: 20110831
  Serious: Yes (Hospitalization)
  Sender: FDA-Public Use
  Company Number: None

PATIENT
  Age: 57 Year
  Sex: Female
  Weight: 86.3 kg

DRUGS (12)
  1. ENALAPRIL MALEATE [Concomitant]
  2. VIT B12 [Concomitant]
  3. METOPROLOL [Concomitant]
  4. SIMVASTATIN [Concomitant]
  5. HYDROCHLOROTHIAZIDE [Concomitant]
  6. AMBIEN CR [Concomitant]
  7. COUMADIN [Suspect]
     Indication: MITRAL VALVE REPLACEMENT
     Dosage: 3MG Q SUN PO : 6MG Q M T W TH F SAT PO CHRONIC
     Route: 048
  8. DIGOXIN [Concomitant]
  9. GABAPENTIN [Concomitant]
  10. AMLODIPINE [Concomitant]
  11. METFORMIN [Concomitant]
  12. LASIX [Concomitant]

REACTIONS (3)
  - EPISTAXIS [None]
  - INTERNATIONAL NORMALISED RATIO INCREASED [None]
  - BLOOD PRESSURE INCREASED [None]
